FAERS Safety Report 5987676-2 (Version None)
Quarter: 2008Q4

REPORT INFORMATION
  Report Type: 
  Country: None (occurrence: None)
  Receive Date: 20081209
  Receipt Date: 20081117
  Transmission Date: 20090506
  Serious: No
  Sender: FDA-Public Use
  Company Number: US-B.I. PHARMACEUTICALS,INC./RIDGEFIELD-2008-BP-17473BP

PATIENT
  Age: 53 Year
  Sex: Female

DRUGS (1)
  1. MELOXICAM [Suspect]
     Indication: ARTHRITIS
     Dosage: 15MG
     Route: 048
     Dates: start: 20020101

REACTIONS (7)
  - ABASIA [None]
  - DRUG INEFFECTIVE [None]
  - DYSSTASIA [None]
  - MOBILITY DECREASED [None]
  - PAIN [None]
  - SLEEP DISORDER [None]
  - WEIGHT BEARING DIFFICULTY [None]
